FAERS Safety Report 7772756-1 (Version None)
Quarter: 2011Q3

REPORT INFORMATION
  Report Type: 
  Country: None (occurrence: None)
  Receive Date: 20110922
  Receipt Date: 20110228
  Transmission Date: 20111222
  Serious: No
  Sender: FDA-Public Use
  Company Number: US-ASTRAZENECA-2011SE10966

PATIENT
  Sex: Male

DRUGS (11)
  1. WARFARIN SODIUM [Concomitant]
  2. PLAVIX [Concomitant]
  3. METFORMIN HCL [Concomitant]
  4. METRONITAZOLE [Concomitant]
  5. METOPROLOL SUCCINATE [Concomitant]
  6. LAMOTRIGINE [Concomitant]
  7. GEMFIBROZIL [Concomitant]
  8. LISINOPRIL [Concomitant]
  9. NIFEDIPINE [Concomitant]
  10. LIPITOR [Concomitant]
  11. SEROQUEL [Suspect]
     Indication: BIPOLAR DISORDER
     Route: 048
     Dates: start: 20101201, end: 20110201

REACTIONS (4)
  - ANGER [None]
  - DEPRESSION [None]
  - DRUG DOSE OMISSION [None]
  - LETHARGY [None]
